FAERS Safety Report 13116043 (Version 1)
Quarter: 2017Q1

REPORT INFORMATION
  Report Type: Spontaneous
  Country: FR (occurrence: FR)
  Receive Date: 20170116
  Receipt Date: 20170116
  Transmission Date: 20170428
  Serious: Yes (Death)
  Sender: FDA-Public Use
  Company Number: FR-ROCHE-1877066

PATIENT
  Age: 89 Year
  Sex: Female

DRUGS (10)
  1. BISOPROLOL [Suspect]
     Active Substance: BISOPROLOL
     Indication: ATRIAL FIBRILLATION
     Route: 048
     Dates: start: 20161110, end: 20161117
  2. ETHAMBUTOL [Concomitant]
     Active Substance: ETHAMBUTOL HYDROCHLORIDE
     Route: 042
     Dates: start: 20161109, end: 20161109
  3. TAZOCILLINE [Concomitant]
     Active Substance: PIPERACILLIN SODIUM\TAZOBACTAM SODIUM
     Route: 042
     Dates: start: 20161117, end: 20161117
  4. MERONEM [Concomitant]
     Active Substance: MEROPENEM
     Route: 042
     Dates: start: 20161117, end: 20161119
  5. RIFATER [Suspect]
     Active Substance: ISONIAZID\PYRAZINAMIDE\RIFAMPIN
     Indication: PULMONARY TUBERCULOSIS
     Route: 048
     Dates: start: 20161109, end: 20161117
  6. METHYLPREDNISOLONE. [Suspect]
     Active Substance: METHYLPREDNISOLONE
     Indication: DYSPNOEA
     Route: 042
     Dates: start: 20161110, end: 20161110
  7. AMIKACINE [Concomitant]
     Active Substance: AMIKACIN
     Route: 042
     Dates: start: 20161117, end: 20161119
  8. ROCEPHINE [Suspect]
     Active Substance: CEFTRIAXONE SODIUM
     Indication: LUNG DISORDER
     Route: 042
     Dates: start: 20161107, end: 20161117
  9. CORTANCYL [Suspect]
     Active Substance: PREDNISONE
     Indication: DYSPNOEA
     Route: 048
     Dates: start: 20161111, end: 20161116
  10. ROVAMYCINE [Concomitant]
     Active Substance: SPIRAMYCIN
     Route: 042
     Dates: start: 20161107, end: 20161109

REACTIONS (2)
  - Renal failure [Fatal]
  - Hepatocellular injury [Fatal]

NARRATIVE: CASE EVENT DATE: 20161110
